FAERS Safety Report 5326947-X (Version None)
Quarter: 2007Q2

REPORT INFORMATION
  Report Type: 
  Country: None (occurrence: None)
  Receive Date: 20070511
  Receipt Date: 20070501
  Transmission Date: 20071010
  Serious: No
  Sender: FDA-Public Use
  Company Number: 012384

PATIENT
  Age: 63 Year
  Sex: Male

DRUGS (5)
  1. PRIALT [Suspect]
     Indication: POST LAMINECTOMY SYNDROME
     Dosage: SEE IMAGE
     Route: 037
     Dates: start: 20050901
  2. PRIALT [Suspect]
     Indication: SURGICAL FAILURE
     Dosage: SEE IMAGE
     Route: 037
     Dates: start: 20050901
  3. WELLBUTRIN [Concomitant]
  4. VALIUM /00017001/ (DIAZEPAM) [Concomitant]
  5. TESTOSTERONE [Concomitant]

REACTIONS (9)
  - ASTHENIA [None]
  - BACK INJURY [None]
  - DEPRESSION [None]
  - DRUG WITHDRAWAL SYNDROME [None]
  - FALL [None]
  - INSOMNIA [None]
  - IRRITABILITY [None]
  - LOSS OF LIBIDO [None]
  - PAIN [None]
